FAERS Safety Report 11808219 (Version 2)
Quarter: 2015Q4

REPORT INFORMATION
  Report Type: Spontaneous
  Country: JP (occurrence: JP)
  Receive Date: 20151207
  Receipt Date: 20151218
  Transmission Date: 20160305
  Serious: Yes (Hospitalization)
  Sender: FDA-Public Use
  Company Number: JP-BAYER-2015-478540

PATIENT
  Age: 84 Year
  Sex: Female
  Weight: 35.8 kg

DRUGS (8)
  1. BAYASPIRIN [Suspect]
     Active Substance: ASPIRIN
     Indication: STENT PATENCY MAINTENANCE
     Dosage: DAILY DOSE 100 MG
     Route: 048
     Dates: start: 2011, end: 20150703
  2. MAINTATE [Concomitant]
     Active Substance: BISOPROLOL FUMARATE
     Indication: CARDIAC FAILURE
     Dosage: DAILY DOSE .625 MG
     Route: 048
     Dates: start: 2011
  3. DIART [Concomitant]
     Active Substance: AZOSEMIDE
     Indication: CARDIAC FAILURE
     Dosage: DAILY DOSE 45 MG
     Route: 048
     Dates: start: 2011
  4. NU-LOTAN [Concomitant]
     Active Substance: LOSARTAN POTASSIUM
     Indication: CARDIAC FAILURE
     Dosage: DAILY DOSE 25 MG
     Route: 048
     Dates: start: 2011
  5. GASTER [Concomitant]
     Active Substance: FAMOTIDINE
     Indication: CHRONIC GASTRITIS
     Dosage: DAILY DOSE 20 MG
     Route: 048
     Dates: start: 2011
  6. CRESTOR [Concomitant]
     Active Substance: ROSUVASTATIN CALCIUM
     Indication: HYPERCHOLESTEROLAEMIA
     Dosage: DAILY DOSE 2.5 MG
     Route: 048
     Dates: start: 2011
  7. ALLOPURINOL. [Concomitant]
     Active Substance: ALLOPURINOL
     Indication: HYPERURICAEMIA
     Dosage: DAILY DOSE 50 MG
     Route: 048
     Dates: start: 2011
  8. RIZE [Concomitant]
     Active Substance: CLOTIAZEPAM
     Indication: ANXIETY
     Dosage: DAILY DOSE 5 MG
     Route: 048
     Dates: start: 2011

REACTIONS (4)
  - Diarrhoea [Recovered/Resolved]
  - Dehydration [Recovered/Resolved]
  - Prerenal failure [Recovering/Resolving]
  - Colitis microscopic [Recovered/Resolved]

NARRATIVE: CASE EVENT DATE: 201506
